FAERS Safety Report 12080515 (Version 1)
Quarter: 2016Q1

REPORT INFORMATION
  Report Type: Spontaneous
  Country: GR (occurrence: GR)
  Receive Date: 20160216
  Receipt Date: 20160216
  Transmission Date: 20160526
  Serious: Yes (Other)
  Sender: FDA-Public Use
  Company Number: GR-BAXTER-2016BAX007234

PATIENT
  Age: 44 Year
  Sex: Female

DRUGS (12)
  1. GOSERELINE [Suspect]
     Active Substance: GOSERELIN
     Indication: INVASIVE DUCTAL BREAST CARCINOMA
     Dosage: REGIMEN #1, CYCLIC
     Route: 065
     Dates: start: 201003
  2. ADRIAMYCIN [Suspect]
     Active Substance: DOXORUBICIN HYDROCHLORIDE
     Indication: INVASIVE DUCTAL BREAST CARCINOMA
     Dosage: REGIMEN #1, FOR 5 YEARS
     Route: 065
  3. DOCETAXEL. [Suspect]
     Active Substance: DOCETAXEL
     Indication: INVASIVE DUCTAL BREAST CARCINOMA
     Dosage: REGIMEN #1, 4 CYCLES
     Route: 065
  4. 5 FU [Suspect]
     Active Substance: FLUOROURACIL
     Indication: INVASIVE DUCTAL BREAST CARCINOMA
     Dosage: REGIMEN #1, 4 CYCLES
     Route: 065
  5. CAPECITABINE. [Suspect]
     Active Substance: CAPECITABINE
     Indication: INVASIVE DUCTAL BREAST CARCINOMA
     Dosage: REGIMEN #1
     Route: 065
     Dates: end: 201411
  6. PACLITAXEL. [Suspect]
     Active Substance: PACLITAXEL
     Indication: INVASIVE DUCTAL BREAST CARCINOMA
     Dosage: REGIMEN #1, FOR 5 YEARS
     Route: 065
  7. FASLODEX [Suspect]
     Active Substance: FULVESTRANT
     Indication: INVASIVE DUCTAL BREAST CARCINOMA
     Dosage: REGIMEN #1
     Route: 065
     Dates: start: 201502, end: 201512
  8. TAMOXIFEN CITRATE. [Suspect]
     Active Substance: TAMOXIFEN CITRATE
     Indication: INVASIVE DUCTAL BREAST CARCINOMA
     Dosage: REGIMEN #1, FOR 5 YEARS
     Route: 065
  9. CABAZITAXEL [Suspect]
     Active Substance: CABAZITAXEL
     Indication: INVASIVE DUCTAL BREAST CARCINOMA
     Dosage: REGIMEN #1
     Route: 065
  10. ENDOXAN 1000 MG - POWDER FOR SOLUTION FOR INJECTION [Suspect]
     Active Substance: CYCLOPHOSPHAMIDE
     Indication: INVASIVE DUCTAL BREAST CARCINOMA
     Dosage: REGIMEN #1, 4 CYCLES
     Route: 065
  11. ANASTROZOLE. [Suspect]
     Active Substance: ANASTROZOLE
     Indication: INVASIVE DUCTAL BREAST CARCINOMA
     Dosage: REGIMEN #1
     Route: 065
     Dates: start: 201003
  12. METHOTREXATE SODIUM. [Suspect]
     Active Substance: METHOTREXATE SODIUM
     Indication: INVASIVE DUCTAL BREAST CARCINOMA
     Dosage: REGIMEN #1, 4 CYCLES
     Route: 065

REACTIONS (4)
  - No therapeutic response [Unknown]
  - Therapy responder [Unknown]
  - Malignant neoplasm progression [Unknown]
  - Breast cancer recurrent [Unknown]

NARRATIVE: CASE EVENT DATE: 200909
